FAERS Safety Report 7901853-2 (Version None)
Quarter: 2011Q4

REPORT INFORMATION
  Report Type: 
  Country: None (occurrence: None)
  Receive Date: 20111108
  Receipt Date: 20111028
  Transmission Date: 20120403
  Serious: Yes (Hospitalization)
  Sender: FDA-Public Use
  Company Number: ES-PERRIGO-11ES009348

PATIENT
  Age: 36 Year
  Sex: Female

DRUGS (4)
  1. IBUPROFEN [Suspect]
     Indication: ALLERGY TEST
     Dosage: 50 MG, SINGLE
     Route: 048
     Dates: start: 20100820, end: 20100820
  2. AMOXICILLIN [Concomitant]
     Indication: EAR INFECTION
     Dosage: 500 MG, TID
     Route: 048
     Dates: start: 20090401, end: 20090401
  3. IBUPROFEN [Suspect]
     Indication: EAR INFECTION
     Dosage: 600 MG
     Route: 048
     Dates: start: 20100301, end: 20100301
  4. IBUPROFEN [Suspect]
     Indication: MYALGIA
     Dosage: 400 MG 2-3 DOSES
     Route: 048
     Dates: start: 20090401, end: 20090401

REACTIONS (3)
  - TYPE III IMMUNE COMPLEX MEDIATED REACTION [None]
  - TYPE IV HYPERSENSITIVITY REACTION [None]
  - MENINGITIS ASEPTIC [None]
